FAERS Safety Report 22102328 (Version 5)
Quarter: 2023Q2

REPORT INFORMATION
  Report Type: Spontaneous
  Country: CA (occurrence: CA)
  Receive Date: 20230316
  Receipt Date: 20230508
  Transmission Date: 20230721
  Serious: Yes (Hospitalization)
  Sender: FDA-Public Use
  Company Number: CA-CELLTRION INC.-2023CA004727

PATIENT

DRUGS (5)
  1. INFLECTRA [Suspect]
     Active Substance: INFLIXIMAB-DYYB
     Indication: Crohn^s disease
     Dosage: 1 DF, WEEK 0 AND WEEK 1, DOSE UNKNOWN
     Route: 042
     Dates: start: 20230214, end: 20230221
  2. INFLECTRA [Suspect]
     Active Substance: INFLIXIMAB-DYYB
     Dosage: 640MG (10 MG/KG, WEEK 0 AND WEEK 1)
     Route: 042
     Dates: start: 20230221
  3. INFLECTRA [Suspect]
     Active Substance: INFLIXIMAB-DYYB
     Dosage: 10 MG/KG, WEEK 3 AND WEEK 7 THEN EVERY 8 WEEKS
     Route: 042
  4. INFLECTRA [Suspect]
     Active Substance: INFLIXIMAB-DYYB
     Dosage: 10 MG/KG (630), EVERY 4 WEEKS, W3 AND THEN MAINTENANCE EVERY 4 WEEKS
     Route: 042
     Dates: start: 20230308, end: 20230308
  5. BENADRYL [Concomitant]
     Active Substance: DIPHENHYDRAMINE HYDROCHLORIDE
     Indication: Premedication
     Dosage: 50 MG
     Dates: start: 20230308, end: 20230308

REACTIONS (11)
  - Fistula [Not Recovered/Not Resolved]
  - Abscess [Unknown]
  - Off label use [Unknown]
  - Inflammation [Unknown]
  - Gastrointestinal disorder [Recovering/Resolving]
  - Pruritus [Recovered/Resolved]
  - Rash [Unknown]
  - Infusion site extravasation [Unknown]
  - Hypersensitivity [Unknown]
  - Urticaria [Unknown]
  - Pharyngeal oedema [Unknown]

NARRATIVE: CASE EVENT DATE: 20230214
